FAERS Safety Report 26117497 (Version 1)
Quarter: 2025Q4

REPORT INFORMATION
  Report Type: Spontaneous
  Country: US (occurrence: None)
  Receive Date: 20251203
  Receipt Date: 20251203
  Transmission Date: 20260118
  Serious: Yes (Other)
  Sender: FDA-CTU
  Company Number: None

PATIENT
  Sex: Male

DRUGS (10)
  1. LENALIDOMIDE [Suspect]
     Active Substance: LENALIDOMIDE
     Indication: Plasma cell myeloma
     Dosage: ? TAKE 1 CAPSULE BY MOUTH DAILY QN DAYS 1-14 QF EVERY 21 DAYS CYCLE QF CHEMQTHERPAY
     Route: 048
     Dates: start: 20250919
  2. ALPRAZOLAM [Concomitant]
     Active Substance: ALPRAZOLAM
  3. DARZALEX  SOL [Concomitant]
  4. FISH OIL [Concomitant]
     Active Substance: FISH OIL
  5. KP VITAMIN D [Concomitant]
  6. LENALIDOMIDE [Concomitant]
     Active Substance: LENALIDOMIDE
  7. LEVOTHYROXINE [Concomitant]
     Active Substance: LEVOTHYROXINE
  8. MONTELUKAST SODIUM [Concomitant]
     Active Substance: MONTELUKAST SODIUM
  9. OLM MED/HCTZ [Concomitant]
  10. VELCADE [Concomitant]
     Active Substance: BORTEZOMIB

REACTIONS (1)
  - Hernia repair [None]
